FAERS Safety Report 19162982 (Version 7)
Quarter: 2021Q3

REPORT INFORMATION
  Report Type: Report from Study
  Country: US (occurrence: US)
  Receive Date: 20210421
  Receipt Date: 20210816
  Transmission Date: 20211014
  Serious: No
  Sender: FDA-Public Use
  Company Number: NVSC2021US089687

PATIENT
  Age: 45 Year
  Sex: Female

DRUGS (2)
  1. MAYZENT [Suspect]
     Active Substance: SIPONIMOD
     Indication: SECONDARY PROGRESSIVE MULTIPLE SCLEROSIS
  2. MAYZENT [Suspect]
     Active Substance: SIPONIMOD
     Indication: RELAPSING-REMITTING MULTIPLE SCLEROSIS
     Dosage: 2 MG, QD
     Route: 048
     Dates: start: 20210418

REACTIONS (6)
  - Movement disorder [Unknown]
  - Hypoaesthesia [Not Recovered/Not Resolved]
  - Headache [Recovered/Resolved]
  - Illness [Unknown]
  - Hypertension [Unknown]
  - Product dose omission in error [Not Recovered/Not Resolved]

NARRATIVE: CASE EVENT DATE: 20210418
